FAERS Safety Report 9616967 (Version 3)
Quarter: 2015Q1

REPORT INFORMATION
  Report Type: Spontaneous
  Country: US (occurrence: US)
  Receive Date: 20131011
  Receipt Date: 20150211
  Transmission Date: 20150721
  Serious: Yes (Hospitalization, Other)
  Sender: FDA-Public Use
  Company Number: US-ALEXION-A201302566

PATIENT

DRUGS (2)
  1. SOLIRIS [Suspect]
     Active Substance: ECULIZUMAB
     Indication: ANTIPHOSPHOLIPID SYNDROME
     Dosage: UNK
     Route: 042
     Dates: start: 201107, end: 201309
  2. SOLIRIS [Suspect]
     Active Substance: ECULIZUMAB
     Indication: OFF LABEL USE
     Dosage: UNK
     Route: 042

REACTIONS (7)
  - Platelet count decreased [Unknown]
  - Off label use [Unknown]
  - Subdural haematoma [Recovered/Resolved]
  - Neisseria infection [Recovered/Resolved]
  - Staphylococcal infection [Recovered/Resolved]
  - Neurological symptom [Unknown]
  - Device related infection [Recovered/Resolved]

NARRATIVE: CASE EVENT DATE: 201411
